FAERS Safety Report 7706605-4 (Version None)
Quarter: 2011Q3

REPORT INFORMATION
  Report Type: 
  Country: None (occurrence: None)
  Receive Date: 20110824
  Receipt Date: 20110815
  Transmission Date: 20111222
  Serious: Yes (Hospitalization)
  Sender: FDA-Public Use
  Company Number: US-BAYER-201030383NA

PATIENT
  Sex: Female
  Weight: 69.388 kg

DRUGS (4)
  1. YAZ [Suspect]
     Indication: PRODUCT USED FOR UNKNOWN INDICATION
     Route: 048
     Dates: start: 20050801, end: 20090901
  2. MOTRIN [Concomitant]
     Dosage: 800 MG, UNK
     Dates: start: 20090101
  3. YASMIN [Suspect]
     Indication: PRODUCT USED FOR UNKNOWN INDICATION
     Route: 048
     Dates: start: 20050801, end: 20090901
  4. AUGMENTIN '125' [Concomitant]
     Dosage: UNK
     Dates: start: 20090101

REACTIONS (5)
  - GALLBLADDER DISORDER [None]
  - BILIARY COLIC [None]
  - CHOLECYSTITIS CHRONIC [None]
  - CHOLELITHIASIS [None]
  - CHOLECYSTITIS ACUTE [None]
